FAERS Safety Report 20885859 (Version 1)
Quarter: 2022Q2

REPORT INFORMATION
  Report Type: Spontaneous
  Country: US (occurrence: US)
  Receive Date: 20220527
  Receipt Date: 20220527
  Transmission Date: 20220720
  Serious: Yes (Other)
  Sender: FDA-Public Use
  Company Number: US-NOVARTISPH-NVSC2022US120716

PATIENT
  Age: 61 Year
  Sex: Male

DRUGS (5)
  1. CARBOPLATIN [Suspect]
     Active Substance: CARBOPLATIN
     Indication: Peritoneal mesothelioma malignant
     Dosage: 4 MG/ AREA UNDER THE CURVE
     Route: 065
  2. CARBOPLATIN [Suspect]
     Active Substance: CARBOPLATIN
     Dosage: 3 MG/ AREA UNDER THE CURVE FOR CYCLE 5
     Route: 065
  3. CARBOPLATIN [Suspect]
     Active Substance: CARBOPLATIN
     Dosage: 260 UNK
     Route: 065
  4. PEMETREXED [Suspect]
     Active Substance: PEMETREXED
     Indication: Peritoneal mesothelioma malignant
     Dosage: 500 MG/M2, Q3W FOR 4 CYCLES
     Route: 065
  5. PEMBROLIZUMAB [Suspect]
     Active Substance: PEMBROLIZUMAB
     Indication: Peritoneal mesothelioma malignant
     Dosage: 200 MG, Q3W
     Route: 065

REACTIONS (3)
  - Peritoneal mesothelioma malignant [Unknown]
  - Malignant neoplasm progression [Unknown]
  - Product use in unapproved indication [Unknown]
